FAERS Safety Report 6195143-9 (Version None)
Quarter: 2009Q2

REPORT INFORMATION
  Report Type: 
  Country: None (occurrence: None)
  Receive Date: 20090519
  Receipt Date: 20090511
  Transmission Date: 20091009
  Serious: Yes (Other)
  Sender: FDA-Public Use
  Company Number: JP-PFIZER INC-2009199849

PATIENT
  Age: 50 Year

DRUGS (1)
  1. ARGATROBAN [Suspect]
     Dosage: UNK
     Route: 041
     Dates: start: 20090407, end: 20090407

REACTIONS (1)
  - VASCULITIS [None]
